FAERS Safety Report 6957000-7 (Version None)
Quarter: 2010Q3

REPORT INFORMATION
  Report Type: 
  Country: None (occurrence: None)
  Receive Date: 20100827
  Receipt Date: 20100827
  Transmission Date: 20110219
  Serious: Yes (Hospitalization)
  Sender: FDA-Public Use
  Company Number: None

PATIENT
  Age: 65 Year
  Sex: Female
  Weight: 76.2043 kg

DRUGS (6)
  1. JANTOVEN [Suspect]
     Indication: DEEP VEIN THROMBOSIS
     Dosage: 1 TABLET DAILY PO
     Route: 048
     Dates: start: 20100806, end: 20100811
  2. JANTOVEN [Suspect]
     Indication: OPEN REDUCTION OF FRACTURE
     Dosage: 1 TABLET DAILY PO
     Route: 048
     Dates: start: 20100806, end: 20100811
  3. JANTOVEN [Suspect]
     Indication: THROMBOSIS PROPHYLAXIS
     Dosage: 1 TABLET DAILY PO
     Route: 048
     Dates: start: 20100806, end: 20100811
  4. LOVENOX [Suspect]
     Indication: DEEP VEIN THROMBOSIS
     Dosage: 40MG TWICE DAILY SQ
     Route: 058
     Dates: start: 20100810, end: 20100811
  5. LOVENOX [Suspect]
     Indication: OPEN REDUCTION OF FRACTURE
     Dosage: 40MG TWICE DAILY SQ
     Route: 058
     Dates: start: 20100810, end: 20100811
  6. LOVENOX [Suspect]
     Indication: THROMBOSIS PROPHYLAXIS
     Dosage: 40MG TWICE DAILY SQ
     Route: 058
     Dates: start: 20100810, end: 20100811

REACTIONS (2)
  - HAEMORRHAGE [None]
  - INTERNATIONAL NORMALISED RATIO INCREASED [None]
